FAERS Safety Report 6745766-0 (Version None)
Quarter: 2010Q2

REPORT INFORMATION
  Report Type: 
  Country: None (occurrence: None)
  Receive Date: 20100528
  Receipt Date: 20100429
  Transmission Date: 20101027
  Serious: Yes (Other)
  Sender: FDA-Public Use
  Company Number: US-BAYER-201014961BCC

PATIENT
  Age: 90 Year
  Sex: Female
  Weight: 62 kg

DRUGS (12)
  1. ASPIRIN [Suspect]
     Indication: HEADACHE
     Dosage: TOTAL DAILY DOSE: 325 MG  UNIT DOSE: 325 MG
     Route: 048
  2. CITRACAL MAXIMUM CAPLETS + D [Suspect]
     Indication: MINERAL SUPPLEMENTATION
     Dosage: TOTAL DAILY DOSE: 1 DF  UNIT DOSE: 1 DF
     Route: 048
     Dates: start: 20100401, end: 20100401
  3. VITAMIN D [Concomitant]
     Route: 065
  4. CENTRUM SILVER [Concomitant]
     Route: 065
  5. VITAMIN B COMPLEX TAB [Concomitant]
     Route: 065
  6. TRICOR [Concomitant]
     Route: 065
  7. LIPITOR [Concomitant]
     Route: 065
  8. NORVAST [Concomitant]
     Route: 065
  9. TENORMAN [Concomitant]
     Route: 065
  10. QUINAPRIL [Concomitant]
     Route: 065
  11. FISH OIL [Concomitant]
     Route: 065
  12. GLUCOPHAGE [Concomitant]
     Route: 065

REACTIONS (2)
  - ABDOMINAL DISCOMFORT [None]
  - CONSTIPATION [None]
